FAERS Safety Report 10167466 (Version 3)
Quarter: 2014Q2

REPORT INFORMATION
  Report Type: Spontaneous
  Country: JP (occurrence: JP)
  Receive Date: 20140512
  Receipt Date: 20140611
  Transmission Date: 20141212
  Serious: Yes (Other)
  Sender: FDA-Public Use
  Company Number: PHHY2014JP056707

PATIENT
  Age: 78 Year
  Sex: Male

DRUGS (3)
  1. ZOMETA [Suspect]
     Indication: METASTASES TO BONE
     Dosage: 4 MG, PER ADMINISTRATION
     Route: 041
     Dates: start: 20121010, end: 20121205
  2. DOCETAXEL [Suspect]
     Indication: HORMONE-REFRACTORY PROSTATE CANCER
  3. DEXAMETHASONE [Suspect]

REACTIONS (4)
  - Pneumonia [Unknown]
  - Pyrexia [Unknown]
  - Prostate cancer metastatic [Unknown]
  - Malignant neoplasm progression [Unknown]
